FAERS Safety Report 18754331 (Version 5)
Quarter: 2021Q3

REPORT INFORMATION
  Report Type: Report from Study
  Country: JP (occurrence: JP)
  Receive Date: 20210119
  Receipt Date: 20210909
  Transmission Date: 20211014
  Serious: Yes (Death, Other)
  Sender: FDA-Public Use
  Company Number: JP-AMGEN-JPNCT2021007273

PATIENT
  Age: 75 Year
  Sex: Male

DRUGS (13)
  1. DARBEPOETIN ALFA [Suspect]
     Active Substance: DARBEPOETIN ALFA
     Dosage: 120 MICROGRAM, QWK
     Route: 058
     Dates: start: 20181012, end: 20181116
  2. DARBEPOETIN ALFA [Suspect]
     Active Substance: DARBEPOETIN ALFA
     Dosage: 120 MICROGRAM, Q2WK
     Route: 058
     Dates: start: 20190531
  3. DARBEPOETIN ALFA [Suspect]
     Active Substance: DARBEPOETIN ALFA
     Indication: MYELODYSPLASTIC SYNDROME
     Dosage: 120 MICROGRAM, Q3WK
     Route: 058
     Dates: start: 20190802, end: 20191004
  4. LANSOPRAZOLE. [Concomitant]
     Active Substance: LANSOPRAZOLE
     Indication: GASTROOESOPHAGEAL REFLUX DISEASE
     Dosage: 15 MILLIGRAM
     Route: 048
     Dates: start: 20181026, end: 20181116
  5. FAMOTIDINE. [Concomitant]
     Active Substance: FAMOTIDINE
     Indication: GASTRIC ULCER
     Dosage: 20 MILLIGRAM
     Route: 048
     Dates: start: 20181130
  6. DARBEPOETIN ALFA [Suspect]
     Active Substance: DARBEPOETIN ALFA
     Dosage: 120 MICROGRAM, QWK
     Route: 058
     Dates: start: 20190215, end: 20190301
  7. DARBEPOETIN ALFA [Suspect]
     Active Substance: DARBEPOETIN ALFA
     Dosage: 120 MICROGRAM, QWK
     Route: 058
     Dates: start: 20190315, end: 20190329
  8. BAKTAR [Concomitant]
     Active Substance: SULFAMETHOXAZOLE\TRIMETHOPRIM
     Indication: PNEUMOCYSTIS JIROVECII PNEUMONIA
     Dosage: 0.5 DOSAGE FORM
     Route: 048
     Dates: start: 20181026, end: 20181116
  9. DARBEPOETIN ALFA [Suspect]
     Active Substance: DARBEPOETIN ALFA
     Dosage: 60 MICROGRAM
     Route: 058
     Dates: start: 20181005, end: 20181005
  10. DARBEPOETIN ALFA [Suspect]
     Active Substance: DARBEPOETIN ALFA
     Dosage: 120 MICROGRAM, Q2WK
     Route: 058
     Dates: start: 20181130, end: 20190208
  11. DARBEPOETIN ALFA [Suspect]
     Active Substance: DARBEPOETIN ALFA
     Dosage: 120 MICROGRAM, QWK
     Route: 058
     Dates: start: 20190419, end: 20190426
  12. PREDONINE [Concomitant]
     Active Substance: PREDNISOLONE
     Indication: HAEMOLYTIC ANAEMIA
     Dosage: 20 MILLIGRAM
     Route: 048
     Dates: start: 20181026
  13. FLUCONAZOLE. [Concomitant]
     Active Substance: FLUCONAZOLE
     Indication: SYSTEMIC MYCOSIS
     Dosage: 100 MILLIGRAM
     Route: 048
     Dates: start: 20181026, end: 20181116

REACTIONS (8)
  - Death [Fatal]
  - Peripheral vein occlusion [Unknown]
  - Malaise [Unknown]
  - Pyrexia [Unknown]
  - Somnolence [Unknown]
  - Abdominal pain upper [Unknown]
  - Pyrexia [Unknown]
  - Chest pain [Unknown]

NARRATIVE: CASE EVENT DATE: 20191224
